FAERS Safety Report 9641743 (Version 1)
Quarter: 2013Q4

REPORT INFORMATION
  Report Type: Spontaneous
  Country: GB (occurrence: None)
  Receive Date: 20131021
  Receipt Date: 20131021
  Transmission Date: 20140711
  Serious: Yes (Other)
  Sender: FDA-Public Use
  Company Number: KAD201310-001358

PATIENT
  Age: 57 Year
  Sex: Female

DRUGS (3)
  1. RIBAVIRIN [Suspect]
     Indication: HEPATITIS C
     Route: 048
     Dates: start: 20121210
  2. INCIVO [Suspect]
     Indication: HEPATITIS C
     Route: 048
     Dates: start: 20121210
  3. PEGINTERFERON ALFA-2B [Suspect]
     Indication: HEPATITIS C
     Dates: start: 20121210

REACTIONS (15)
  - Anaemia [None]
  - Dyspnoea [None]
  - Constipation [None]
  - Depression [None]
  - Dry mouth [None]
  - Dry skin [None]
  - Pain [None]
  - Pruritus generalised [None]
  - Pain [None]
  - Headache [None]
  - Nausea [None]
  - Rash [None]
  - Malaise [None]
  - Fatigue [None]
  - Oxygen saturation decreased [None]
